FAERS Safety Report 18934192 (Version 1)
Quarter: 2021Q1

REPORT INFORMATION
  Report Type: Spontaneous
  Country: US (occurrence: US)
  Receive Date: 20210224
  Receipt Date: 20210224
  Transmission Date: 20210420
  Serious: Yes (Other)
  Sender: FDA-Public Use
  Company Number: US-GLAXOSMITHKLINE-US2021GSK036868

PATIENT
  Sex: Male

DRUGS (4)
  1. RANITIDINE. [Suspect]
     Active Substance: RANITIDINE
     Dosage: UNK,TWICE A DAY
     Route: 065
     Dates: start: 200508, end: 201902
  2. RANITIDINE. [Suspect]
     Active Substance: RANITIDINE
     Dosage: UNK,TWICE A DAY
     Route: 065
     Dates: start: 200508, end: 201902
  3. ZANTAC [Suspect]
     Active Substance: RANITIDINE HYDROCHLORIDE
     Dosage: UNK UNK, QD
     Route: 065
     Dates: start: 200502, end: 200508
  4. ZANTAC [Suspect]
     Active Substance: RANITIDINE HYDROCHLORIDE
     Dosage: UNK UNK, QD
     Route: 065
     Dates: start: 200502, end: 200508

REACTIONS (2)
  - Prostate cancer [Unknown]
  - Bladder cancer [Unknown]
